FAERS Safety Report 5846032-8 (Version None)
Quarter: 2008Q3

REPORT INFORMATION
  Report Type: 
  Country: None (occurrence: None)
  Receive Date: 20080814
  Receipt Date: 20080805
  Transmission Date: 20090109
  Serious: Yes (Hospitalization, Other)
  Sender: FDA-Public Use
  Company Number: US-ABBOTT-08P-163-0465560-00

PATIENT
  Sex: Female
  Weight: 47.67 kg

DRUGS (3)
  1. LUPRON DEPOT [Suspect]
     Indication: ENDOMETRIOSIS
     Route: 030
     Dates: start: 19911101, end: 19920401
  2. HOMEOPATHIC [Concomitant]
     Indication: ULCER
  3. HOMEOPATHIC [Concomitant]
     Indication: PAIN

REACTIONS (19)
  - ABNORMAL SENSATION IN EYE [None]
  - APATHY [None]
  - ARTHRALGIA [None]
  - BLINDNESS [None]
  - BLOOD AMYLASE INCREASED [None]
  - BODY TEMPERATURE INCREASED [None]
  - DEPRESSION [None]
  - FATIGUE [None]
  - HEPATIC ENZYME INCREASED [None]
  - HYPERHIDROSIS [None]
  - HYPERTENSION [None]
  - INJECTION SITE ULCER [None]
  - NAUSEA [None]
  - NEPHROLITHIASIS [None]
  - PHLEBOLITH [None]
  - SELF ESTEEM DECREASED [None]
  - TEMPERATURE INTOLERANCE [None]
  - VISION BLURRED [None]
  - WEIGHT DECREASED [None]
